FAERS Safety Report 5677005-6 (Version None)
Quarter: 2008Q1

REPORT INFORMATION
  Report Type: 
  Country: None (occurrence: None)
  Receive Date: 20080324
  Receipt Date: 20080312
  Transmission Date: 20080703
  Serious: Yes (Death, Other)
  Sender: FDA-Public Use
  Company Number: PHBS2008PK03238

PATIENT
  Age: 10 Year
  Sex: Male

DRUGS (7)
  1. CYCLOSPORINE [Suspect]
     Indication: STEM CELL TRANSPLANT
     Route: 065
  2. METHOTREXATE [Suspect]
     Indication: STEM CELL TRANSPLANT
     Route: 065
  3. CYCLOPHOSPHAMIDE [Suspect]
     Indication: STEM CELL TRANSPLANT
     Dosage: 500 MG/KG/D
  4. ANTITHYMOCYTE IMMUNOGLOBULIN [Suspect]
     Dosage: 15 MG/KG/D
  5. ANTIBIOTICS [Concomitant]
  6. VORICONAZOLE [Suspect]
     Dosage: 400 MG, BID
  7. VORICONAZOLE [Suspect]
     Dosage: 400 MG/D

REACTIONS (11)
  - ASPERGILLOSIS [None]
  - BLOOD STEM CELL TRANSPLANT FAILURE [None]
  - BLOODY DISCHARGE [None]
  - COUGH [None]
  - DEBRIDEMENT [None]
  - LOCAL SWELLING [None]
  - NECROSIS [None]
  - PAIN [None]
  - PNEUMONITIS [None]
  - PSEUDOMONAS INFECTION [None]
  - PYREXIA [None]
